FAERS Safety Report 8183374-8 (Version None)
Quarter: 2012Q1

REPORT INFORMATION
  Report Type: 
  Country: None (occurrence: None)
  Receive Date: 20120130
  Receipt Date: 20111117
  Transmission Date: 20120608
  Serious: Yes (Hospitalization)
  Sender: FDA-Public Use
  Company Number: 046030

PATIENT
  Sex: Male
  Weight: 98.9 kg

DRUGS (3)
  1. DEPAKOTE [Concomitant]
  2. DILANTIN [Concomitant]
  3. KEPPRA [Suspect]
     Indication: CONVULSION
     Dosage: (1500 MG BID, THERAPY FROM:2 YEARS ORAL)
     Route: 048
     Dates: start: 20090101, end: 20111114

REACTIONS (2)
  - INCORRECT DOSE ADMINISTERED [None]
  - CONVULSION [None]
